FAERS Safety Report 5255043-5 (Version None)
Quarter: 2007Q1

REPORT INFORMATION
  Report Type: 
  Country: None (occurrence: None)
  Receive Date: 20070305
  Receipt Date: 20070221
  Transmission Date: 20070707
  Serious: Yes (Hospitalization)
  Sender: FDA-Public Use
  Company Number: FR-AMGEN-UK209918

PATIENT
  Sex: Female

DRUGS (5)
  1. DARBEPOETIN ALFA [Suspect]
     Indication: DIALYSIS
     Route: 042
     Dates: start: 20060701
  2. PREVISCAN [Concomitant]
  3. CALCIUM [Concomitant]
  4. LEVOTHYROXINE SODIUM [Concomitant]
  5. INSULATARD [Concomitant]

REACTIONS (1)
  - HEMIPARESIS [None]
